FAERS Safety Report 21933424 (Version 2)
Quarter: 2023Q1

REPORT INFORMATION
  Report Type: Spontaneous
  Country: US (occurrence: US)
  Receive Date: 20230131
  Receipt Date: 20230306
  Transmission Date: 20230418
  Serious: No
  Sender: FDA-Public Use
  Company Number: US-FDC-2023USSPO00004

PATIENT
  Sex: Female

DRUGS (2)
  1. OFLOXACIN [Suspect]
     Active Substance: OFLOXACIN
     Indication: Dry eye
     Route: 047
     Dates: start: 20221222
  2. OFLOXACIN [Suspect]
     Active Substance: OFLOXACIN
     Indication: Eye infection bacterial

REACTIONS (1)
  - Lacrimation increased [Not Recovered/Not Resolved]
